FAERS Safety Report 5064938-7 (Version None)
Quarter: 2006Q3

REPORT INFORMATION
  Report Type: 
  Country: None (occurrence: None)
  Receive Date: 20060725
  Receipt Date: 20060710
  Transmission Date: 20061208
  Serious: Yes (Hospitalization, Other)
  Sender: FDA-Public Use
  Company Number: US200607001378

PATIENT
  Age: 50 Year
  Sex: Female

DRUGS (10)
  1. FORTEO [Suspect]
     Indication: OSTEOPOROSIS
  2. KLONOPIN [Concomitant]
  3. AMARYL /SWE/ (GLIMEPIRIDE) [Concomitant]
  4. SPIRONOLACTONE [Concomitant]
  5. SYNTHROID [Concomitant]
  6. FERROUS SULFATE TAB [Concomitant]
  7. REMERON [Concomitant]
  8. RIFAXIMIN (RIFAXIMIN) [Concomitant]
  9. HALDOL [Concomitant]
  10. FORTEO [Concomitant]

REACTIONS (5)
  - ARTHRALGIA [None]
  - CONVULSION [None]
  - HIP FRACTURE [None]
  - LEG AMPUTATION [None]
  - LIVER DISORDER [None]
